FAERS Safety Report 19596551 (Version 1)
Quarter: 2021Q3

REPORT INFORMATION
  Report Type: Spontaneous
  Country: US (occurrence: US)
  Receive Date: 20210723
  Receipt Date: 20210723
  Transmission Date: 20211014
  Serious: No
  Sender: FDA-Public Use
  Company Number: US-GLAXOSMITHKLINE-USCH2021047247

PATIENT
  Sex: Female

DRUGS (1)
  1. ADVIL PM [Suspect]
     Active Substance: DIPHENHYDRAMINE CITRATE\IBUPROFEN
     Indication: PAIN
     Dosage: UNK
     Dates: start: 20210705, end: 20210714

REACTIONS (5)
  - Dry throat [Unknown]
  - Incorrect dose administered [Unknown]
  - Back pain [Unknown]
  - Dehydration [Recovered/Resolved]
  - Renal pain [Unknown]

NARRATIVE: CASE EVENT DATE: 20210705
